FAERS Safety Report 7511462-5 (Version None)
Quarter: 2011Q2

REPORT INFORMATION
  Report Type: 
  Country: None (occurrence: None)
  Receive Date: 20110531
  Receipt Date: 20110517
  Transmission Date: 20111010
  Serious: Yes (Hospitalization, Other)
  Sender: FDA-Public Use
  Company Number: SE-JNJFOC-20110407037

PATIENT
  Age: 43 Year
  Sex: Male

DRUGS (7)
  1. COX-1 ANTAGONIST [Concomitant]
     Route: 065
     Dates: start: 20100204
  2. IBUPROFEN [Concomitant]
     Route: 048
  3. METHOTREXATE [Concomitant]
     Route: 048
     Dates: start: 20100204
  4. REMICADE [Suspect]
     Indication: ANKYLOSING SPONDYLITIS
     Route: 042
     Dates: start: 20100722
  5. REMICADE [Suspect]
     Route: 042
     Dates: start: 20100401
  6. REMICADE [Suspect]
     Route: 042
     Dates: start: 20100204
  7. REMICADE [Suspect]
     Route: 042
     Dates: start: 20100404

REACTIONS (2)
  - ANGINA UNSTABLE [None]
  - MYOCARDIAL INFARCTION [None]
